FAERS Safety Report 12113460 (Version 2)
Quarter: 2017Q1

REPORT INFORMATION
  Report Type: Report from Study
  Country: US (occurrence: US)
  Receive Date: 20160225
  Receipt Date: 20170105
  Transmission Date: 20170428
  Serious: Yes (Hospitalization, Other)
  Sender: FDA-Public Use
  Company Number: US-AMGEN-USASL2016022348

PATIENT
  Age: 82 Year
  Sex: Male

DRUGS (3)
  1. ENBREL [Suspect]
     Active Substance: ETANERCEPT
     Indication: RHEUMATOID ARTHRITIS
     Dosage: UNK
     Route: 065
     Dates: start: 19990201
  2. METHOTREXATE. [Concomitant]
     Active Substance: METHOTREXATE
     Dosage: UNK
     Route: 065
  3. ENBREL [Suspect]
     Active Substance: ETANERCEPT
     Dosage: 50 MG, QWK
     Route: 065
     Dates: start: 2006

REACTIONS (12)
  - Skin infection [Unknown]
  - Lower respiratory tract infection [Unknown]
  - Shoulder arthroplasty [Unknown]
  - Intervertebral disc protrusion [Unknown]
  - Acne [Unknown]
  - Dysphonia [Unknown]
  - Nasopharyngitis [Unknown]
  - Back disorder [Unknown]
  - Malaise [Unknown]
  - Cough [Unknown]
  - Exostosis [Unknown]
  - Back pain [Unknown]

NARRATIVE: CASE EVENT DATE: 20141215
